FAERS Safety Report 24656929 (Version 3)
Quarter: 2025Q1

REPORT INFORMATION
  Report Type: Spontaneous
  Country: US (occurrence: US)
  Receive Date: 20241125
  Receipt Date: 20250110
  Transmission Date: 20250408
  Serious: No
  Sender: BOEHRINGER INGELHEIM
  Company Number: US-Komodo Health-a23aa000004KM8XAAW

PATIENT
  Age: 66 Year
  Sex: Female

DRUGS (8)
  1. COMBIVENT RESPIMAT [Suspect]
     Active Substance: ALBUTEROL SULFATE\IPRATROPIUM BROMIDE
     Indication: Chronic obstructive pulmonary disease
     Dosage: 1 PUFF?LOT NO: 23L4039, 304346B, 304346C, 302610F, 306281B, 306281, 302610F, 401444, 302610B, 301914
     Route: 055
     Dates: start: 2019
  2. BREZTRI [Concomitant]
     Active Substance: BUDESONIDE\FORMOTEROL\GLYCOPYRROLATE
     Indication: Product used for unknown indication
  3. ALBUTEROL [Concomitant]
     Active Substance: ALBUTEROL
     Indication: Product used for unknown indication
  4. POTASSIUM CITRATE [Concomitant]
     Active Substance: POTASSIUM CITRATE
     Indication: Product used for unknown indication
  5. MORPHINE [Concomitant]
     Active Substance: MORPHINE
     Indication: Product used for unknown indication
  6. LASIX [Concomitant]
     Active Substance: FUROSEMIDE
     Indication: Product used for unknown indication
  7. PREDNISONE [Concomitant]
     Active Substance: PREDNISONE
     Indication: Product used for unknown indication
  8. AZITHROMYCIN [Concomitant]
     Active Substance: AZITHROMYCIN
     Indication: Product used for unknown indication

REACTIONS (5)
  - Joint swelling [Unknown]
  - Nephrolithiasis [Unknown]
  - Sinusitis [Not Recovered/Not Resolved]
  - Drug ineffective [Unknown]
  - Product delivery mechanism issue [Unknown]

NARRATIVE: CASE EVENT DATE: 20241001
